FAERS Safety Report 6442478-8 (Version None)
Quarter: 2009Q4

REPORT INFORMATION
  Report Type: 
  Country: None (occurrence: None)
  Receive Date: 20091117
  Receipt Date: 20091109
  Transmission Date: 20100525
  Serious: Yes (Hospitalization)
  Sender: FDA-Public Use
  Company Number: US-BIOGENIDEC-2009BI008133

PATIENT
  Age: 44 Year
  Sex: Female
  Weight: 76 kg

DRUGS (6)
  1. TYSABRI [Suspect]
     Indication: MULTIPLE SCLEROSIS
     Route: 042
     Dates: start: 20070703, end: 20090202
  2. TYSABRI [Suspect]
     Route: 042
     Dates: start: 20091102
  3. ZETIA [Concomitant]
  4. VITAMIN B6 [Concomitant]
  5. GLUTAMINE [Concomitant]
  6. OXYCODONE HCL [Concomitant]

REACTIONS (6)
  - BLINDNESS [None]
  - COLON CANCER [None]
  - FATIGUE [None]
  - HYPOAESTHESIA [None]
  - NAUSEA [None]
  - TEMPERATURE INTOLERANCE [None]
